FAERS Safety Report 7545082-3 (Version None)
Quarter: 2011Q2

REPORT INFORMATION
  Report Type: 
  Country: None (occurrence: None)
  Receive Date: 20110610
  Receipt Date: 20110610
  Transmission Date: 20111010
  Serious: Yes (Life-Threatening, Hospitalization, Disabling)
  Sender: FDA-Public Use
  Company Number: None

PATIENT
  Age: 35 Year
  Sex: Female
  Weight: 57.1532 kg

DRUGS (2)
  1. MIRENA [Suspect]
     Indication: UTERINE LEIOMYOMA
     Dosage: NA - BIRTH CONTROL DEVICE
  2. MIRENA [Suspect]
     Indication: MENSTRUAL DISORDER
     Dosage: NA - BIRTH CONTROL DEVICE

REACTIONS (2)
  - INTRACARDIAC THROMBUS [None]
  - PULSE ABSENT [None]
